FAERS Safety Report 8427318-X (Version None)
Quarter: 2012Q2

REPORT INFORMATION
  Report Type: 
  Country: None (occurrence: None)
  Receive Date: 20120611
  Receipt Date: 20120604
  Transmission Date: 20120825
  Serious: Yes (Other)
  Sender: FDA-Public Use
  Company Number: US-PFIZER INC-2012095052

PATIENT
  Sex: Female

DRUGS (2)
  1. PRISTIQ [Suspect]
     Indication: DEPRESSION
     Dosage: 50 MG DAILY
  2. PRISTIQ [Suspect]
     Dosage: 100 MG, DAILY

REACTIONS (4)
  - DEPRESSION [None]
  - OBSESSIVE THOUGHTS [None]
  - FEELING ABNORMAL [None]
  - DRUG INEFFECTIVE [None]
